FAERS Safety Report 14718155 (Version 2)
Quarter: 2019Q2

REPORT INFORMATION
  Report Type: Spontaneous
  Country: US (occurrence: US)
  Receive Date: 20180404
  Receipt Date: 20190415
  Transmission Date: 20190711
  Serious: No
  Sender: FDA-Public Use
  Company Number: US-SA-2018SA042860

PATIENT
  Age: 55 Year
  Sex: Male
  Weight: 74.83 kg

DRUGS (2)
  1. DUPIXENT [Suspect]
     Active Substance: DUPILUMAB
     Indication: DERMATITIS ATOPIC
     Dosage: 600 MG, 1X
     Route: 058
     Dates: start: 20171005, end: 20171005
  2. DUPIXENT [Suspect]
     Active Substance: DUPILUMAB
     Indication: PSORIASIS
     Dosage: 300 MG, QOW
     Route: 058

REACTIONS (3)
  - Myalgia [Not Recovered/Not Resolved]
  - Joint stiffness [Unknown]
  - Arthralgia [Not Recovered/Not Resolved]
